FAERS Safety Report 20395666 (Version 1)
Quarter: 2022Q1

REPORT INFORMATION
  Report Type: Spontaneous
  Country: None (occurrence: GB)
  Receive Date: 20220130
  Receipt Date: 20220130
  Transmission Date: 20220423
  Serious: Yes (Disabling, Other)
  Sender: FDA-Public Use
  Company Number: GB-Ascend Therapeutics US, LLC-2124439

PATIENT
  Age: 52 Year
  Sex: Female
  Weight: 92.07 kg

DRUGS (6)
  1. ESTROGEL [Suspect]
     Active Substance: ESTRADIOL
     Indication: Menopausal symptoms
     Route: 065
     Dates: start: 20210401, end: 20220101
  2. ESTROGEL [Suspect]
     Active Substance: ESTRADIOL
  3. ESTRADIOL [Suspect]
     Active Substance: ESTRADIOL
     Route: 065
     Dates: start: 20210401, end: 20220101
  4. ESTRADIOL [Suspect]
     Active Substance: ESTRADIOL
     Route: 065
     Dates: start: 20210401, end: 20220101
  5. PROGESTERONE [Concomitant]
     Active Substance: PROGESTERONE
     Route: 065
  6. CITALOPRAM [Concomitant]
     Active Substance: CITALOPRAM HYDROBROMIDE
     Route: 065

REACTIONS (7)
  - Hot flush [Recovering/Resolving]
  - Hypersensitivity [Recovering/Resolving]
  - Poor quality sleep [Recovering/Resolving]
  - Headache [Recovering/Resolving]
  - Drug ineffective [Unknown]
  - Abdominal distension [Unknown]
  - Weight increased [Unknown]

NARRATIVE: CASE EVENT DATE: 20210403
